FAERS Safety Report 13383407 (Version 2)
Quarter: 2017Q2

REPORT INFORMATION
  Report Type: Spontaneous
  Country: SI (occurrence: SI)
  Receive Date: 20170329
  Receipt Date: 20170410
  Transmission Date: 20170830
  Serious: Yes (Hospitalization, Other)
  Sender: FDA-Public Use
  Company Number: SI-ROCHE-1908440

PATIENT
  Age: 49 Year
  Sex: Male

DRUGS (4)
  1. COTELLIC [Suspect]
     Active Substance: COBIMETINIB
     Indication: METASTATIC MALIGNANT MELANOMA
     Dosage: 3 WEEKS IN 4 WEEK CYCLE
     Route: 048
     Dates: start: 20161205, end: 20161215
  2. COTELLIC [Suspect]
     Active Substance: COBIMETINIB
     Dosage: 3 WEEKS IN 4 WEEK CYCLE
     Route: 048
     Dates: start: 20170105, end: 20170130
  3. ZELBORAF [Suspect]
     Active Substance: VEMURAFENIB
     Indication: METASTATIC MALIGNANT MELANOMA
     Dosage: 960MG/12H
     Route: 048
     Dates: start: 20161205, end: 20161215
  4. ZELBORAF [Suspect]
     Active Substance: VEMURAFENIB
     Route: 048
     Dates: start: 20170105, end: 20170123

REACTIONS (8)
  - Rash [Recovered/Resolved]
  - Rash maculo-papular [Recovered/Resolved]
  - Paraesthesia [Recovered/Resolved]
  - Choking sensation [Recovered/Resolved]
  - Pharyngeal oedema [Recovered/Resolved]
  - Wound [Unknown]
  - Laryngeal oedema [Recovered/Resolved]
  - Pyrexia [Recovered/Resolved]

NARRATIVE: CASE EVENT DATE: 20161215
